FAERS Safety Report 9787231 (Version 1)
Quarter: 2013Q4

REPORT INFORMATION
  Report Type: Spontaneous
  Country: FR (occurrence: FR)
  Receive Date: 20131229
  Receipt Date: 20131229
  Transmission Date: 20140711
  Serious: Yes (Hospitalization)
  Sender: FDA-Public Use
  Company Number: FR-BRISTOL-MYERS SQUIBB COMPANY-19936426

PATIENT
  Age: 83 Year
  Sex: Female

DRUGS (8)
  1. COUMADINE [Suspect]
     Dates: end: 20131021
  2. BISOPROLOL [Concomitant]
  3. FUROSEMIDE [Concomitant]
  4. RAMIPRIL [Concomitant]
  5. KAYEXALATE [Concomitant]
     Dosage: 1 DF:2 SPOONS MEASURES PER DAY
  6. ESOMEPRAZOLE [Concomitant]
  7. DOLIPRANE [Concomitant]
  8. UVEDOSE [Concomitant]

REACTIONS (3)
  - Cerebral haemorrhage [Not Recovered/Not Resolved]
  - Aphasia [Not Recovered/Not Resolved]
  - Disturbance in attention [Not Recovered/Not Resolved]
